FAERS Safety Report 24072120 (Version 1)
Quarter: 2024Q3

REPORT INFORMATION
  Report Type: Report from Study
  Country: US (occurrence: None)
  Receive Date: 20240710
  Receipt Date: 20240710
  Transmission Date: 20241016
  Serious: Yes (Other)
  Sender: ASTRAZENECA
  Company Number: 2024A153312

PATIENT
  Sex: Female

DRUGS (6)
  1. LYNPARZA [Suspect]
     Active Substance: OLAPARIB
     Indication: Ovarian cancer
     Route: 048
     Dates: start: 20210621
  2. ALBUTEROL [Concomitant]
     Active Substance: ALBUTEROL
  3. ALEVE [Concomitant]
     Active Substance: NAPROXEN SODIUM
  4. HUMALOG [Concomitant]
     Active Substance: INSULIN LISPRO
  5. LYRICA [Concomitant]
     Active Substance: PREGABALIN
  6. SYMBICORT [Concomitant]
     Active Substance: BUDESONIDE\FORMOTEROL FUMARATE DIHYDRATE

REACTIONS (3)
  - Syncope [Unknown]
  - Haemorrhage [Unknown]
  - Fall [Unknown]
